FAERS Safety Report 18888508 (Version 1)
Quarter: 2021Q1

REPORT INFORMATION
  Report Type: Spontaneous
  Country: US (occurrence: US)
  Receive Date: 20210212
  Receipt Date: 20210212
  Transmission Date: 20210420
  Serious: Yes (Other)
  Sender: FDA-Public Use
  Company Number: US-ELI_LILLY_AND_COMPANY-US202102004123

PATIENT
  Sex: Male

DRUGS (1)
  1. HUMAN INSULIN (RDNA ORIGIN) 30REG70NPH [Suspect]
     Active Substance: INSULIN HUMAN
     Indication: DIABETES MELLITUS
     Dosage: UNK, UNKNOWN
     Route: 065
     Dates: start: 2009

REACTIONS (3)
  - Iritis [Unknown]
  - Intraocular pressure test abnormal [Unknown]
  - Eye ulcer [Unknown]
